FAERS Safety Report 25331437 (Version 3)
Quarter: 2025Q2

REPORT INFORMATION
  Report Type: Spontaneous
  Country: JP (occurrence: JP)
  Receive Date: 20250519
  Receipt Date: 20250604
  Transmission Date: 20250717
  Serious: No
  Sender: UCB
  Company Number: JP-UCBSA-2025029478

PATIENT

DRUGS (1)
  1. NEUPRO [Suspect]
     Active Substance: ROTIGOTINE
     Indication: Product used for unknown indication

REACTIONS (1)
  - Product adhesion issue [Unknown]

NARRATIVE: CASE EVENT DATE: 20250507
